FAERS Safety Report 5252019-9 (Version None)
Quarter: 2007Q1

REPORT INFORMATION
  Report Type: 
  Country: None (occurrence: None)
  Receive Date: 20070226
  Receipt Date: 20070209
  Transmission Date: 20070707
  Serious: Yes (Death)
  Sender: FDA-Public Use
  Company Number: 200702IM000081

PATIENT
  Age: 60 Year
  Sex: Male

DRUGS (1)
  1. ACTIMMUNE [Suspect]
     Indication: MYCOBACTERIUM ABSCESSUS INFECTION

REACTIONS (3)
  - MYCOBACTERIUM ABSCESSUS INFECTION [None]
  - OBLITERATIVE BRONCHIOLITIS [None]
  - SUBCUTANEOUS ABSCESS [None]
